FAERS Safety Report 7945658-5 (Version None)
Quarter: 2011Q4

REPORT INFORMATION
  Report Type: 
  Country: None (occurrence: None)
  Receive Date: 20111129
  Receipt Date: 20111118
  Transmission Date: 20120403
  Serious: Yes (Hospitalization, Disabling)
  Sender: FDA-Public Use
  Company Number: GB-ROCHE-1005128

PATIENT
  Sex: Male
  Weight: 68 kg

DRUGS (7)
  1. RANIBIZUMAB [Suspect]
     Route: 050
     Dates: start: 20110809, end: 20110809
  2. ASPIRIN [Concomitant]
  3. RANIBIZUMAB [Suspect]
     Indication: DIABETIC RETINAL OEDEMA
     Route: 050
     Dates: start: 20110315, end: 20110315
  4. ATORVASTATIN [Concomitant]
  5. GLICLAZIDE [Concomitant]
  6. ATENOLOL [Concomitant]
  7. METFORMIN HCL [Concomitant]

REACTIONS (1)
  - PARAPLEGIA [None]
